FAERS Safety Report 6728727-7 (Version None)
Quarter: 2010Q2

REPORT INFORMATION
  Report Type: 
  Country: None (occurrence: None)
  Receive Date: 20100517
  Receipt Date: 20100510
  Transmission Date: 20101027
  Serious: Yes (Death)
  Sender: FDA-Public Use
  Company Number: JP-MERCK-1005USA01676

PATIENT
  Age: 90 Year
  Sex: Male

DRUGS (4)
  1. JANUVIA [Suspect]
     Indication: DIABETES MELLITUS
     Route: 048
     Dates: start: 20100413, end: 20100420
  2. AMLODIPINE BESYLATE [Concomitant]
     Indication: HYPERTENSION
     Route: 048
     Dates: start: 20100413, end: 20100420
  3. LUPRAC [Concomitant]
     Indication: OEDEMA
     Route: 048
     Dates: start: 20100413, end: 20100420
  4. OLMESARTAN MEDOXOMIL [Concomitant]
     Indication: HYPERTENSION
     Route: 048
     Dates: start: 20100413, end: 20100420

REACTIONS (2)
  - HYPOGLYCAEMIA [None]
  - PNEUMONIA [None]
